FAERS Safety Report 4813063-6 (Version None)
Quarter: 2005Q4

REPORT INFORMATION
  Report Type: 
  Country: None (occurrence: None)
  Receive Date: 20051028
  Receipt Date: 20050609
  Transmission Date: 20060501
  Serious: No
  Sender: FDA-Public Use
  Company Number: US-GLAXOSMITHKLINE-A0561997A

PATIENT
  Age: 68 Year
  Sex: Female

DRUGS (4)
  1. ADVAIR DISKUS 100/50 [Suspect]
     Indication: ASTHMA
     Dosage: 1PUFF TWICE PER DAY
     Route: 055
     Dates: start: 20050507, end: 20050601
  2. BENICAR [Concomitant]
  3. ASPIRIN [Concomitant]
  4. PREVACID [Concomitant]

REACTIONS (4)
  - DYSPHONIA [None]
  - EYE MOVEMENT DISORDER [None]
  - PHARYNGOLARYNGEAL PAIN [None]
  - VISION BLURRED [None]
